FAERS Safety Report 18300169 (Version 1)
Quarter: 2020Q3

REPORT INFORMATION
  Report Type: Spontaneous
  Country: BE (occurrence: BE)
  Receive Date: 20200923
  Receipt Date: 20200923
  Transmission Date: 20201103
  Serious: Yes (Other)
  Sender: FDA-Public Use
  Company Number: BE-TEVA-2020-BE-1829469

PATIENT
  Age: 33 Year
  Sex: Male
  Weight: 80 kg

DRUGS (1)
  1. AMOXICILLINE 500 MG [Suspect]
     Active Substance: AMOXICILLIN
     Indication: TOOTH ABSCESS
     Dosage: 3 DOSAGE FORMS DAILY;
     Route: 048
     Dates: start: 20200824, end: 20200829

REACTIONS (1)
  - Dermatitis exfoliative generalised [Recovering/Resolving]
